FAERS Safety Report 20364315 (Version 1)
Quarter: 2022Q1

REPORT INFORMATION
  Report Type: Spontaneous
  Country: US (occurrence: None)
  Receive Date: 20220121
  Receipt Date: 20220121
  Transmission Date: 20220423
  Serious: Yes (unspecified)
  Sender: FDA-Public Use
  Company Number: None

PATIENT
  Age: 58 Year
  Sex: Male

DRUGS (1)
  1. BARICITINIB [Suspect]
     Active Substance: BARICITINIB
     Indication: Upper respiratory tract infection
     Dosage: FREQUENCY : DAILY;?
     Route: 048
     Dates: start: 20211008, end: 20211014

REACTIONS (4)
  - Acute kidney injury [None]
  - Bacterial sepsis [None]
  - Respiratory depression [None]
  - Condition aggravated [None]

NARRATIVE: CASE EVENT DATE: 20211014
